FAERS Safety Report 21211319 (Version 1)
Quarter: 2022Q3

REPORT INFORMATION
  Report Type: Spontaneous
  Country: US (occurrence: None)
  Receive Date: 20220813
  Receipt Date: 20220813
  Transmission Date: 20221027
  Serious: No
  Sender: FDA-Public Use
  Company Number: None

PATIENT
  Age: 65 Year
  Sex: Female
  Weight: 99 kg

DRUGS (3)
  1. PAXLOVID [Suspect]
     Active Substance: NIRMATRELVIR\RITONAVIR
     Indication: COVID-19
     Dosage: FREQUENCY : TWICE A DAY;?
     Route: 048
     Dates: start: 20220813, end: 20220813
  2. Vegan vitamin D3 [Concomitant]
  3. vegan vitamin B12 [Concomitant]

REACTIONS (11)
  - Pain in jaw [None]
  - Bruxism [None]
  - Oral discomfort [None]
  - Dizziness [None]
  - Headache [None]
  - Chest discomfort [None]
  - Dyspepsia [None]
  - Nausea [None]
  - Abdominal pain [None]
  - Dry mouth [None]
  - Throat tightness [None]

NARRATIVE: CASE EVENT DATE: 20220813
